FAERS Safety Report 10356824 (Version 2)
Quarter: 2014Q3

REPORT INFORMATION
  Report Type: Spontaneous
  Country: ES (occurrence: ES)
  Receive Date: 20140801
  Receipt Date: 20140814
  Transmission Date: 20150326
  Serious: Yes (Other)
  Sender: FDA-Public Use
  Company Number: PHHY2014ES092023

PATIENT
  Age: 40 Year
  Sex: Female

DRUGS (4)
  1. LIORESAL [Suspect]
     Active Substance: BACLOFEN
  2. SIRDALUD [Suspect]
     Active Substance: TIZANIDINE
     Dosage: 0.5 DF, ONLY IN NIGHT
     Dates: start: 20140805
  3. SIRDALUD [Suspect]
     Active Substance: TIZANIDINE
     Indication: MULTIPLE SCLEROSIS
     Dosage: 0.5 DF,  MORNING AND NIGHT
  4. GILENYA [Suspect]
     Active Substance: FINGOLIMOD HYDROCHLORIDE
     Indication: MULTIPLE SCLEROSIS
     Route: 048

REACTIONS (1)
  - Hypotension [Recovered/Resolved]
